FAERS Safety Report 7968909-X (Version None)
Quarter: 2011Q4

REPORT INFORMATION
  Report Type: 
  Country: None (occurrence: None)
  Receive Date: 20111208
  Receipt Date: 20111129
  Transmission Date: 20120403
  Serious: Yes (Other)
  Sender: FDA-Public Use
  Company Number: 2011001803

PATIENT
  Age: 62 Year
  Sex: Female

DRUGS (9)
  1. TARCEVA [Suspect]
     Indication: PRODUCT USED FOR UNKNOWN INDICATION
     Dosage: 150 MG, UID/QD, ORAL
     Route: 048
     Dates: start: 20091201, end: 20101201
  2. POTASSIUM CHLORIDE [Concomitant]
  3. DILTIAZEM HYDROCHLORIDE [Concomitant]
  4. ZOLPIDEM TARTRATE [Concomitant]
  5. CONTRAMAL (TRAMADOL HYDROCHLORIDE) [Concomitant]
  6. PREDNISOLONE SODIUM SULFOBENZOATE (PREDNISOLONE SODIUM SULFOBENZOATE) [Concomitant]
  7. KETOPROFEN [Concomitant]
  8. EFFEXOR [Concomitant]
  9. NEXIUM [Concomitant]

REACTIONS (9)
  - DECREASED APPETITE [None]
  - XEROSIS [None]
  - PYREXIA [None]
  - GENERAL PHYSICAL HEALTH DETERIORATION [None]
  - DIARRHOEA [None]
  - ACNE [None]
  - NAUSEA [None]
  - ANDROGENETIC ALOPECIA [None]
  - DRY SKIN [None]
